FAERS Safety Report 21861251 (Version 2)
Quarter: 2023Q1

REPORT INFORMATION
  Report Type: Spontaneous
  Country: US (occurrence: US)
  Receive Date: 20230113
  Receipt Date: 20230220
  Transmission Date: 20230418
  Serious: No
  Sender: FDA-Public Use
  Company Number: US-MYLANLABS-2023M1001379

PATIENT
  Sex: Male

DRUGS (1)
  1. SEMGLEE (INSULIN GLARGINE-YFGN) [Suspect]
     Active Substance: INSULIN GLARGINE-YFGN
     Indication: Type 2 diabetes mellitus
     Dosage: 80 INTERNATIONAL UNIT, QD(80 UNITS EVERY DAY)
     Route: 058

REACTIONS (3)
  - Injection site hypertrophy [Unknown]
  - Product storage error [Unknown]
  - Device mechanical issue [Unknown]
